FAERS Safety Report 14208205 (Version 2)
Quarter: 2017Q4

REPORT INFORMATION
  Report Type: Spontaneous
  Country: BG (occurrence: BG)
  Receive Date: 20171121
  Receipt Date: 20171212
  Transmission Date: 20180321
  Serious: Yes (Other)
  Sender: FDA-Public Use
  Company Number: BG-BAUSCH-BL-2017-031569

PATIENT
  Sex: Male

DRUGS (4)
  1. AZARGA [Concomitant]
     Active Substance: BRINZOLAMIDE\TIMOLOL MALEATE
     Indication: PRODUCT USED FOR UNKNOWN INDICATION
     Dates: start: 201503, end: 201503
  2. LUXFEN [Suspect]
     Active Substance: BRIMONIDINE TARTRATE
     Route: 065
     Dates: end: 201604
  3. COSOPT [Concomitant]
     Active Substance: DORZOLAMIDE HYDROCHLORIDE\TIMOLOL MALEATE
     Indication: PRODUCT USED FOR UNKNOWN INDICATION
     Dates: start: 201507
  4. LUXFEN [Suspect]
     Active Substance: BRIMONIDINE TARTRATE
     Indication: PRODUCT USED FOR UNKNOWN INDICATION
     Route: 065
     Dates: start: 2014

REACTIONS (3)
  - Eye infection [Recovered/Resolved]
  - Retinal detachment [Recovered/Resolved]
  - Intraocular pressure increased [Recovered/Resolved]
